FAERS Safety Report 18279087 (Version 1)
Quarter: 2020Q3

REPORT INFORMATION
  Report Type: Spontaneous
  Country: FR (occurrence: FR)
  Receive Date: 20200917
  Receipt Date: 20200917
  Transmission Date: 20201103
  Serious: Yes (Death, Hospitalization, Other)
  Sender: FDA-Public Use
  Company Number: FR-BRISTOL-MYERS SQUIBB COMPANY-BMS-2020-075732

PATIENT
  Age: 71 Year
  Sex: Male
  Weight: 62 kg

DRUGS (1)
  1. OPDIVO [Suspect]
     Active Substance: NIVOLUMAB
     Indication: NEOPLASM MALIGNANT
     Dosage: 3 MILLIGRAM/KILOGRAM
     Route: 042
     Dates: start: 201901, end: 20200228

REACTIONS (3)
  - Tubulointerstitial nephritis [Fatal]
  - Hepatocellular injury [Fatal]
  - Off label use [Unknown]

NARRATIVE: CASE EVENT DATE: 20200228
